FAERS Safety Report 19768337 (Version 1)
Quarter: 2021Q3

REPORT INFORMATION
  Report Type: Spontaneous
  Country: TN (occurrence: TN)
  Receive Date: 20210830
  Receipt Date: 20210830
  Transmission Date: 20211014
  Serious: Yes (Other)
  Sender: FDA-Public Use
  Company Number: TN-PAIPHARMA-2021-TN-000018

PATIENT
  Age: 64 Year
  Sex: Male

DRUGS (2)
  1. SULFAMETHOXAZOLE + TRIMETHOPRIM (NON?SPECIFIC) [Suspect]
     Active Substance: SULFAMETHOXAZOLE\TRIMETHOPRIM
     Indication: CUTANEOUS NOCARDIOSIS
     Dosage: 55 + 10 MG/KG DAILY
  2. GENTAMICIN. [Concomitant]
     Active Substance: GENTAMICIN
     Dosage: 3 MG/KG DAILY

REACTIONS (1)
  - Drug reaction with eosinophilia and systemic symptoms [Recovered/Resolved]
